FAERS Safety Report 10351561 (Version 1)
Quarter: 2014Q3

REPORT INFORMATION
  Report Type: Spontaneous
  Country: US (occurrence: US)
  Receive Date: 20140730
  Receipt Date: 20140730
  Transmission Date: 20150326
  Serious: No
  Sender: FDA-Public Use
  Company Number: US-009507513-1407USA012147

PATIENT
  Age: 22 Year
  Sex: Female
  Weight: 131.52 kg

DRUGS (1)
  1. IMPLANON [Suspect]
     Active Substance: ETONOGESTREL
     Indication: CONTRACEPTION
     Dosage: 3 YEAR IMPLANT, INSERTED IN LEFT ARM.
     Route: 059
     Dates: start: 20110808, end: 20140722

REACTIONS (3)
  - Implant site scar [Unknown]
  - Device difficult to use [Unknown]
  - Medical device complication [Unknown]

NARRATIVE: CASE EVENT DATE: 201407
